FAERS Safety Report 7291978-X (Version None)
Quarter: 2011Q1

REPORT INFORMATION
  Report Type: 
  Country: None (occurrence: None)
  Receive Date: 20110214
  Receipt Date: 20110202
  Transmission Date: 20110831
  Serious: Yes (Hospitalization)
  Sender: FDA-Public Use
  Company Number: US-ELI_LILLY_AND_COMPANY-US200907006540

PATIENT
  Sex: Female

DRUGS (4)
  1. FORTEO [Suspect]
     Dosage: 20 UG, DAILY (1/D)
     Dates: end: 20110202
  2. FORTEO [Suspect]
     Dosage: 20 UG, DAILY (1/D)
  3. CELEBREX [Concomitant]
  4. FORTEO [Suspect]
     Indication: OSTEOPOROSIS
     Dosage: 20 UG, DAILY (1/D)
     Dates: start: 20090203

REACTIONS (9)
  - HYPERTONIC BLADDER [None]
  - DRY MOUTH [None]
  - WEIGHT DECREASED [None]
  - CONSTIPATION [None]
  - HAEMORRHOIDS [None]
  - WRIST FRACTURE [None]
  - ARTHRALGIA [None]
  - DRY SKIN [None]
  - SLEEP DISORDER DUE TO A GENERAL MEDICAL CONDITION [None]
